FAERS Safety Report 9486358 (Version 1)
Quarter: 2013Q3

REPORT INFORMATION
  Report Type: Spontaneous
  Country: US (occurrence: None)
  Receive Date: 20130827
  Receipt Date: 20130827
  Transmission Date: 20140515
  Serious: No
  Sender: FDA-Public Use
  Company Number: None

PATIENT
  Age: 76 Year
  Sex: Male
  Weight: 92.99 kg

DRUGS (8)
  1. CIALIS 20 LILLY [Suspect]
     Indication: ERECTILE DYSFUNCTION
     Dosage: ONE PILL AS NEEDED TAKEN BY MOUTH?SEVERAL YEARS
     Route: 048
  2. ASPRIN [Concomitant]
  3. ATENOLOL [Concomitant]
  4. BENDICAR [Concomitant]
  5. PRAVASTATIN [Concomitant]
  6. PAROXETINE [Concomitant]
  7. FISH OIL [Concomitant]
  8. MATURE MALE MULTI VITAMIN [Concomitant]

REACTIONS (3)
  - Malaise [None]
  - Hyperhidrosis [None]
  - Hangover [None]
